FAERS Safety Report 8347918-5 (Version None)
Quarter: 2012Q2

REPORT INFORMATION
  Report Type: 
  Country: None (occurrence: None)
  Receive Date: 20120509
  Receipt Date: 20120424
  Transmission Date: 20120825
  Serious: Yes (Death)
  Sender: FDA-Public Use
  Company Number: TN-WATSON-2012-07356

PATIENT
  Age: 32 Year
  Sex: Male

DRUGS (5)
  1. BLEOMYCIN SULFATE [Suspect]
     Indication: LYMPHOMA
     Dosage: UNK
     Route: 065
  2. DOXORUBICIN HCL [Suspect]
     Indication: LYMPHOMA
     Dosage: UNK
     Route: 065
  3. CYCLOPHOSPHAMIDE [Suspect]
     Indication: LYMPHOMA
     Dosage: UNK
     Route: 065
  4. ETOPOSIDE [Suspect]
     Indication: LYMPHOMA
     Dosage: UNK
     Route: 065
  5. PREDNISONE TAB [Suspect]
     Indication: LYMPHOMA
     Dosage: UNK
     Route: 065

REACTIONS (4)
  - ASPERGILLOSIS [None]
  - BACTERIAL SEPSIS [None]
  - MULTI-ORGAN FAILURE [None]
  - NEUTROPENIA [None]
